FAERS Safety Report 7878519-0 (Version None)
Quarter: 2011Q4

REPORT INFORMATION
  Report Type: 
  Country: None (occurrence: None)
  Receive Date: 20111028
  Receipt Date: 20111017
  Transmission Date: 20120403
  Serious: Yes (Other)
  Sender: FDA-Public Use
  Company Number: WAES 1104USA03345

PATIENT
  Age: 60 Year
  Sex: Male

DRUGS (10)
  1. VYTORIN [Suspect]
     Indication: ACUTE CORONARY SYNDROME
     Dosage: PO
     Route: 048
     Dates: start: 20061221
  2. CARTIA XT [Concomitant]
  3. IMDUR [Concomitant]
  4. PLAVIX [Concomitant]
  5. PLACEBO [Suspect]
     Indication: ACUTE CORONARY SYNDROME
     Dosage: PO
     Route: 048
     Dates: start: 20061221
  6. PLACEBO [Suspect]
     Indication: ACUTE CORONARY SYNDROME
     Dosage: PO
     Route: 048
     Dates: start: 20061221
  7. OXYCODONE HCL [Concomitant]
  8. ACETAMINOPHEN [Concomitant]
  9. RAMIPRIL [Concomitant]
  10. ATENOLOL [Concomitant]

REACTIONS (2)
  - URETHRAL STENOSIS [None]
  - GALLBLADDER POLYP [None]
